FAERS Safety Report 4486200-3 (Version None)
Quarter: 2004Q4

REPORT INFORMATION
  Report Type: 
  Country: None (occurrence: None)
  Receive Date: 20041026
  Receipt Date: 20041021
  Transmission Date: 20050328
  Serious: Yes (Life-Threatening, Hospitalization, Disabling)
  Sender: FDA-Public Use
  Company Number: US-MERCK-0410USA03476

PATIENT
  Age: 72 Year
  Sex: Female

DRUGS (10)
  1. VIOXX [Suspect]
     Indication: ARTHRITIS
     Route: 048
  2. CELEBREX [Concomitant]
     Route: 065
  3. BEXTRA [Concomitant]
     Route: 065
  4. LEXAPRO [Concomitant]
     Route: 065
  5. THYROID [Concomitant]
     Route: 065
  6. ASPIRIN [Concomitant]
     Route: 065
  7. SYNTHROID [Concomitant]
     Route: 065
  8. DIABETA [Concomitant]
     Route: 065
  9. FIBERCON [Concomitant]
     Route: 065
  10. COLACE [Concomitant]
     Route: 065

REACTIONS (1)
  - ARTERIAL STENOSIS [None]
